FAERS Safety Report 5518625-9 (Version None)
Quarter: 2007Q4

REPORT INFORMATION
  Report Type: 
  Country: None (occurrence: None)
  Receive Date: 20071115
  Receipt Date: 20071107
  Transmission Date: 20080405
  Serious: Yes (Other)
  Sender: FDA-Public Use
  Company Number: US-ASTRAZENECA-2007UW06444

PATIENT
  Sex: Female
  Weight: 92.7 kg

DRUGS (6)
  1. SEROQUEL [Suspect]
     Indication: DEPRESSION
     Route: 048
     Dates: start: 20040812, end: 20050113
  2. SEROQUEL [Suspect]
     Indication: SLEEP DISORDER
     Route: 048
     Dates: start: 20040812, end: 20050113
  3. SEROQUEL [Suspect]
     Route: 048
     Dates: start: 20050114, end: 20060201
  4. SEROQUEL [Suspect]
     Route: 048
     Dates: start: 20050114, end: 20060201
  5. SEROQUEL [Suspect]
     Route: 048
     Dates: start: 20060202, end: 20060713
  6. SEROQUEL [Suspect]
     Route: 048
     Dates: start: 20060202, end: 20060713

REACTIONS (7)
  - BLOOD CHOLESTEROL INCREASED [None]
  - CIRRHOSIS ALCOHOLIC [None]
  - DIABETES MELLITUS [None]
  - GASTROOESOPHAGEAL REFLUX DISEASE [None]
  - HEPATITIS C [None]
  - LIVER DISORDER [None]
  - PAIN [None]
